FAERS Safety Report 18679784 (Version 1)
Quarter: 2020Q4

REPORT INFORMATION
  Report Type: Spontaneous
  Country: GB (occurrence: GB)
  Receive Date: 20201230
  Receipt Date: 20201230
  Transmission Date: 20210114
  Serious: Yes (Congenital Anomaly, Other)
  Sender: FDA-Public Use
  Company Number: GB-AUROBINDO-AUR-APL-2020-063234

PATIENT
  Age: 19 Year
  Sex: Male
  Weight: 44 kg

DRUGS (13)
  1. CLOBAZAM. [Concomitant]
     Active Substance: CLOBAZAM
     Indication: PRODUCT USED FOR UNKNOWN INDICATION
     Dosage: 4 MILLIGRAM, ONCE A DAY ((PREVIOUSLY 8MG/DAY))
     Route: 065
  2. LANSOPRAZOLE. [Concomitant]
     Active Substance: LANSOPRAZOLE
     Indication: PRODUCT USED FOR UNKNOWN INDICATION
     Dosage: UNK
     Route: 065
  3. PHENOBARBITAL. [Concomitant]
     Active Substance: PHENOBARBITAL
     Indication: PRODUCT USED FOR UNKNOWN INDICATION
     Dosage: UNK
     Route: 065
  4. CHLORAL HYDRATE [Concomitant]
     Active Substance: CHLORAL HYDRATE
     Indication: PRODUCT USED FOR UNKNOWN INDICATION
     Dosage: UNK
     Route: 065
  5. ETHOSUXIMIDE. [Concomitant]
     Active Substance: ETHOSUXIMIDE
     Indication: PRODUCT USED FOR UNKNOWN INDICATION
     Dosage: UNK
     Route: 065
  6. EPIDIOLEX [Suspect]
     Active Substance: CANNABIDIOL
     Dosage: 400 MILLIGRAM, ONCE A DAY
     Route: 048
     Dates: start: 20201014, end: 2020
  7. EPIDIOLEX [Suspect]
     Active Substance: CANNABIDIOL
     Dosage: 6 MILLIGRAM/KILOGRAM
     Route: 048
     Dates: start: 20200916, end: 20200930
  8. EPIDIOLEX [Suspect]
     Active Substance: CANNABIDIOL
     Dosage: 500 MILLIGRAM, ONCE A DAY
     Route: 048
     Dates: start: 2020, end: 20201202
  9. EPIDIOLEX [Suspect]
     Active Substance: CANNABIDIOL
     Dosage: 8 MILLIGRAM/KILOGRAM
     Route: 048
     Dates: start: 20200930, end: 20201014
  10. COLECALCIFEROL [Concomitant]
     Active Substance: CHOLECALCIFEROL
     Indication: PRODUCT USED FOR UNKNOWN INDICATION
     Dosage: UNK
     Route: 065
  11. FLUOXETINE [Suspect]
     Active Substance: FLUOXETINE HYDROCHLORIDE
     Indication: PRODUCT USED FOR UNKNOWN INDICATION
     Dosage: 36 MILLIGRAM, ONCE A DAY
     Route: 065
  12. EPIDIOLEX [Suspect]
     Active Substance: CANNABIDIOL
     Indication: EPILEPSY
     Dosage: 4 MILLIGRAM/KILOGRAM
     Route: 048
     Dates: start: 20200902, end: 20200916
  13. TOPIRAMATE. [Concomitant]
     Active Substance: TOPIRAMATE
     Indication: PRODUCT USED FOR UNKNOWN INDICATION
     Dosage: UNK
     Route: 065

REACTIONS (5)
  - Social avoidant behaviour [Unknown]
  - Diarrhoea [Recovered/Resolved]
  - Somnolence [Recovered/Resolved]
  - Drug interaction [Unknown]
  - Decreased appetite [Recovered/Resolved]

NARRATIVE: CASE EVENT DATE: 20200903
